FAERS Safety Report 9041243 (Version 1)
Quarter: 2013Q1

REPORT INFORMATION
  Report Type: Spontaneous
  Country: US (occurrence: None)
  Receive Date: 20130123
  Receipt Date: 20130123
  Transmission Date: 20140127
  Serious: No
  Sender: FDA-Public Use
  Company Number: None

PATIENT
  Sex: 0

DRUGS (1)
  1. LARIAM [Suspect]

REACTIONS (11)
  - Disturbance in attention [None]
  - Memory impairment [None]
  - Sleep disorder [None]
  - Mood swings [None]
  - Anger [None]
  - Depression [None]
  - Vertigo [None]
  - Headache [None]
  - Abdominal pain upper [None]
  - Social avoidant behaviour [None]
  - Hypersomnia [None]
